FAERS Safety Report 20696539 (Version 1)
Quarter: 2022Q2

REPORT INFORMATION
  Report Type: Other
  Country: US (occurrence: US)
  Receive Date: 20220411
  Receipt Date: 20220411
  Transmission Date: 20220721
  Serious: Yes (Death)
  Sender: FDA-Public Use
  Company Number: US-TRAVERE-2022TVT00337

PATIENT
  Age: 5 Month
  Sex: Female

DRUGS (1)
  1. CHOLBAM [Suspect]
     Active Substance: CHOLIC ACID
     Indication: Cerebrohepatorenal syndrome
     Dosage: 50 MG / BID
     Route: 048
     Dates: start: 20211101, end: 20220228

REACTIONS (1)
  - Hepatic failure [Fatal]
